FAERS Safety Report 6917105-3 (Version None)
Quarter: 2010Q3

REPORT INFORMATION
  Report Type: 
  Country: None (occurrence: None)
  Receive Date: 20100804
  Receipt Date: 20100722
  Transmission Date: 20110219
  Serious: Yes (Hospitalization, Disabling)
  Sender: FDA-Public Use
  Company Number: 7011692

PATIENT
  Age: 55 Year
  Sex: Female

DRUGS (3)
  1. LEVOTHYROXINE SODIUM [Suspect]
     Indication: WEIGHT DECREASED
     Dosage: ORAL
     Route: 048
     Dates: end: 20100410
  2. OROCAL D3 (LEKOVIT CA) (CALCIUM CARBONATE, COLECALCIFEROL, CALCIUM CAR [Concomitant]
  3. UNSPECIFIED VITAMINS (VITAMINS NOS) (VITAMINS) [Concomitant]

REACTIONS (11)
  - AORTIC VALVE INCOMPETENCE [None]
  - ATRIAL FIBRILLATION [None]
  - CACHEXIA [None]
  - COMA [None]
  - HAEMORRHAGIC STROKE [None]
  - HEMIPLEGIA [None]
  - HYPERTHYROIDISM [None]
  - ISCHAEMIC CEREBRAL INFARCTION [None]
  - MITRAL VALVE INCOMPETENCE [None]
  - MUTISM [None]
  - OFF LABEL USE [None]
